FAERS Safety Report 20850042 (Version 1)
Quarter: 2022Q2

REPORT INFORMATION
  Report Type: Spontaneous
  Country: US (occurrence: None)
  Receive Date: 20220518
  Receipt Date: 20220518
  Transmission Date: 20220721
  Serious: Yes (Disabling)
  Sender: FDA-Public Use
  Company Number: None

PATIENT
  Age: 56 Year
  Sex: Female
  Weight: 55.79 kg

DRUGS (1)
  1. DEXAMETHASONE [Suspect]
     Active Substance: DEXAMETHASONE
     Indication: Sinusitis

REACTIONS (4)
  - Amnesia [None]
  - Hallucination [None]
  - Confusional state [None]
  - Cognitive disorder [None]

NARRATIVE: CASE EVENT DATE: 20190607
